FAERS Safety Report 25890773 (Version 1)
Quarter: 2025Q4

REPORT INFORMATION
  Report Type: Spontaneous
  Country: US (occurrence: US)
  Receive Date: 20251007
  Receipt Date: 20251007
  Transmission Date: 20260117
  Serious: No
  Sender: FERRING
  Company Number: US-FERRINGPH-2025FE03755

PATIENT
  Age: 63 Year
  Sex: Male
  Weight: 111.11 kg

DRUGS (3)
  1. ADSTILADRIN [Suspect]
     Active Substance: NADOFARAGENE FIRADENOVEC-VNCG
     Indication: Bladder cancer
     Dosage: 75 ML, EVERY 3RD MONTH
     Route: 043
     Dates: start: 20250625
  2. GEMTESA [Concomitant]
     Active Substance: VIBEGRON
     Indication: Micturition urgency
     Dosage: 75 MG, DAILY
     Route: 065
     Dates: start: 20250620, end: 20250628
  3. AMLODIPINE [Concomitant]
     Active Substance: AMLODIPINE BESYLATE
     Indication: Hypertension
     Dosage: 25 MG
     Route: 065

REACTIONS (1)
  - Instillation site discharge [Unknown]

NARRATIVE: CASE EVENT DATE: 20250625
